FAERS Safety Report 12484044 (Version 2)
Quarter: 2016Q3

REPORT INFORMATION
  Report Type: Spontaneous
  Country: US (occurrence: US)
  Receive Date: 20160621
  Receipt Date: 20160707
  Transmission Date: 20161109
  Serious: Yes (Hospitalization, Other)
  Sender: FDA-Public Use
  Company Number: US-DRREDDYS-DRL/USA/16/0080698

PATIENT
  Sex: Female

DRUGS (5)
  1. HABITROL [Suspect]
     Active Substance: NICOTINE
     Indication: PROPHYLAXIS OF NAUSEA AND VOMITING
     Route: 061
  2. HABITROL [Suspect]
     Active Substance: NICOTINE
     Route: 061
  3. PROTONIX [Concomitant]
     Active Substance: PANTOPRAZOLE SODIUM
     Indication: PRODUCT USED FOR UNKNOWN INDICATION
     Dosage: A FEW YEARS AGO
     Route: 065
  4. LISINOPRIL. [Concomitant]
     Active Substance: LISINOPRIL
     Indication: PRODUCT USED FOR UNKNOWN INDICATION
     Dosage: A FEW YEARS AGO
     Route: 065
  5. NITROGLYCERIN. [Concomitant]
     Active Substance: NITROGLYCERIN
     Indication: PRODUCT USED FOR UNKNOWN INDICATION
     Dosage: A FEW YEARS AGO
     Route: 065

REACTIONS (9)
  - Drug ineffective for unapproved indication [Unknown]
  - Nicotine dependence [Unknown]
  - Product adhesion issue [Unknown]
  - Treatment noncompliance [Unknown]
  - Musculoskeletal chest pain [Recovering/Resolving]
  - Thrombosis [Unknown]
  - Product use issue [Unknown]
  - Therapeutic response unexpected [Unknown]
  - Wrong technique in product usage process [Unknown]
